FAERS Safety Report 8120395-5 (Version None)
Quarter: 2012Q1

REPORT INFORMATION
  Report Type: 
  Country: None (occurrence: None)
  Receive Date: 20120207
  Receipt Date: 20120131
  Transmission Date: 20120608
  Serious: Yes (Hospitalization)
  Sender: FDA-Public Use
  Company Number: JP-GLAXOSMITHKLINE-B0779167A

PATIENT
  Age: 17 Year
  Sex: Male

DRUGS (2)
  1. VALPROATE SODIUM [Concomitant]
     Route: 048
  2. LAMICTAL [Suspect]
     Indication: PRODUCT USED FOR UNKNOWN INDICATION
     Dosage: 25MG TWICE PER DAY

REACTIONS (2)
  - RASH [None]
  - DISSEMINATED INTRAVASCULAR COAGULATION [None]
